FAERS Safety Report 21199993 (Version 1)
Quarter: 2022Q3

REPORT INFORMATION
  Report Type: Spontaneous
  Country: CN (occurrence: CN)
  Receive Date: 20220811
  Receipt Date: 20220811
  Transmission Date: 20221027
  Serious: Yes (Other)
  Sender: FDA-Public Use
  Company Number: CN-UCBSA-2022044516

PATIENT
  Age: 72 Year
  Sex: Male

DRUGS (8)
  1. KEPPRA [Suspect]
     Active Substance: LEVETIRACETAM
     Indication: Seizure
     Dosage: UNKNOWN DOSE
  2. MIDAZOLAM [Concomitant]
     Active Substance: MIDAZOLAM
     Indication: Seizure
     Dosage: UNKNOWN DOSE
     Route: 042
  3. MIDAZOLAM [Concomitant]
     Active Substance: MIDAZOLAM
     Dosage: UNKNOWN DOSE
  4. AMLODIPINE [Concomitant]
     Active Substance: AMLODIPINE BESYLATE
     Indication: Hypertension
     Dosage: UNKNOWN DOSE
     Route: 048
  5. NOREPINEPHRINE [Concomitant]
     Active Substance: NOREPINEPHRINE
     Indication: Blood pressure measurement
     Dosage: UNKNOWN DOSE
  6. NOREPINEPHRINE [Concomitant]
     Active Substance: NOREPINEPHRINE
     Dosage: 1 MICROGRAM/KILOGRAM/MIN
  7. ROCURONIUM BROMIDE [Concomitant]
     Active Substance: ROCURONIUM BROMIDE
     Indication: Muscle injury
     Dosage: UNKNOWN DOSE
  8. DOPAMINE [Concomitant]
     Active Substance: DOPAMINE HYDROCHLORIDE
     Indication: Blood pressure measurement
     Dosage: 15 ?G/KG/MIN

REACTIONS (2)
  - Brain oedema [Unknown]
  - Cerebrospinal fluid leakage [Recovered/Resolved]
